FAERS Safety Report 4319124-2 (Version None)
Quarter: 2004Q1

REPORT INFORMATION
  Report Type: 
  Country: None (occurrence: None)
  Receive Date: 20040318
  Receipt Date: 20040310
  Transmission Date: 20041129
  Serious: Yes (Hospitalization)
  Sender: FDA-Public Use
  Company Number: WAES 0403USA01179

PATIENT
  Sex: Male

DRUGS (6)
  1. LIPITOR [Concomitant]
  2. IMODIUM [Concomitant]
  3. MERCAPTOPURINE [Concomitant]
  4. ASACOL [Concomitant]
  5. PREDNISONE [Concomitant]
  6. ZOCOR [Suspect]
     Route: 048

REACTIONS (2)
  - ADVERSE DRUG REACTION [None]
  - COLITIS ULCERATIVE [None]
